FAERS Safety Report 15673500 (Version 3)
Quarter: 2019Q1

REPORT INFORMATION
  Report Type: Report from Study
  Country: US (occurrence: US)
  Receive Date: 20181129
  Receipt Date: 20190226
  Transmission Date: 20190417
  Serious: Yes (Other)
  Sender: FDA-Public Use
  Company Number: US-ACTELION-A-US2018-170357

PATIENT
  Age: 68 Year
  Sex: Female

DRUGS (7)
  1. OPSUMIT [Suspect]
     Active Substance: MACITENTAN
     Dosage: UNK MG, QD
     Route: 048
     Dates: start: 201803
  2. SILDENAFIL. [Concomitant]
     Active Substance: SILDENAFIL
  3. LETAIRIS [Concomitant]
     Active Substance: AMBRISENTAN
  4. ADEMPAS [Concomitant]
     Active Substance: RIOCIGUAT
     Dosage: 0.5 MG, UNK
  5. OPSUMIT [Suspect]
     Active Substance: MACITENTAN
     Indication: PULMONARY ARTERIAL HYPERTENSION
     Dosage: 10 MG, QD
     Route: 048
     Dates: start: 20180418
  6. ADEMPAS [Concomitant]
     Active Substance: RIOCIGUAT
     Dosage: 2 MG, UNK
  7. ADEMPAS [Concomitant]
     Active Substance: RIOCIGUAT
     Dosage: 1 MG, UNK

REACTIONS (37)
  - Injury [Recovered/Resolved]
  - Heart rate increased [Unknown]
  - Balance disorder [Unknown]
  - Insomnia [Unknown]
  - Dysphagia [Unknown]
  - Dyspnoea exertional [Unknown]
  - Blindness [Not Recovered/Not Resolved]
  - Pain [Not Recovered/Not Resolved]
  - Musculoskeletal stiffness [Unknown]
  - Weight increased [Unknown]
  - Thyroid disorder [Unknown]
  - Diarrhoea [Not Recovered/Not Resolved]
  - Respiratory rate increased [Unknown]
  - Dyspnoea [Unknown]
  - Panic attack [Unknown]
  - Wheezing [Unknown]
  - Limb injury [Recovered/Resolved]
  - Contusion [Unknown]
  - Nervousness [Unknown]
  - Amnesia [Unknown]
  - Unevaluable event [Unknown]
  - Concussion [Unknown]
  - Chest pain [Unknown]
  - Neuralgia [Unknown]
  - Nausea [Unknown]
  - Fall [Unknown]
  - Dizziness [Unknown]
  - Anxiety [Unknown]
  - Hypotension [Unknown]
  - Head injury [Recovered/Resolved]
  - Irritable bowel syndrome [Unknown]
  - Headache [Unknown]
  - Back pain [Not Recovered/Not Resolved]
  - Arthropathy [Unknown]
  - Vomiting [Not Recovered/Not Resolved]
  - Abdominal discomfort [Unknown]
  - Depression [Not Recovered/Not Resolved]

NARRATIVE: CASE EVENT DATE: 20180402
